FAERS Safety Report 5179712-0 (Version None)
Quarter: 2006Q4

REPORT INFORMATION
  Report Type: 
  Country: None (occurrence: None)
  Receive Date: 20061211
  Receipt Date: 20061128
  Transmission Date: 20070319
  Serious: Yes (Hospitalization, Other)
  Sender: FDA-Public Use
  Company Number: 2006149929

PATIENT
  Sex: Male

DRUGS (2)
  1. CELEBREX (CELECOXIB) [Suspect]
     Dosage: ORAL
     Route: 048
     Dates: start: 20030101
  2. VIOXX [Suspect]
     Dosage: ORAL
     Route: 048
     Dates: start: 19990601

REACTIONS (2)
  - MYOCARDIAL INFARCTION [None]
  - THROMBOSIS [None]
